APPROVED DRUG PRODUCT: XIFAXAN
Active Ingredient: RIFAXIMIN
Strength: 200MG
Dosage Form/Route: TABLET;ORAL
Application: N021361 | Product #001
Applicant: SALIX PHARMACEUTICALS INC
Approved: May 25, 2004 | RLD: Yes | RS: Yes | Type: RX

PATENTS:
Patent 7928115 | Expires: Jul 24, 2029
Patent 10703763 | Expires: Feb 27, 2026
Patent 8741904 | Expires: Feb 27, 2026
Patent 8518949 | Expires: Feb 27, 2026
Patent 9271968 | Expires: Feb 27, 2026
Patent 8193196 | Expires: Sep 2, 2027